FAERS Safety Report 4978840-X (Version None)
Quarter: 2006Q2

REPORT INFORMATION
  Report Type: 
  Country: None (occurrence: None)
  Receive Date: 20060417
  Receipt Date: 20060404
  Transmission Date: 20061013
  Serious: Yes (Hospitalization)
  Sender: FDA-Public Use
  Company Number: 2005EU000480

PATIENT
  Age: 51 Year
  Sex: Female

DRUGS (3)
  1. TACROLIMUS [Suspect]
     Indication: PANCREAS ISLET CELL TRANSPLANT
     Dosage: 1 MG, BID, ORAL
     Route: 048
     Dates: start: 20040801, end: 20041201
  2. RAPAMUNE [Concomitant]
  3. ZENAPAX [Concomitant]

REACTIONS (5)
  - CONDITION AGGRAVATED [None]
  - NEUROTOXICITY [None]
  - RETINOPATHY [None]
  - VISUAL ACUITY REDUCED [None]
  - VISUAL DISTURBANCE [None]
